FAERS Safety Report 23152251 (Version 2)
Quarter: 2023Q4

REPORT INFORMATION
  Report Type: Report from Study
  Country: US (occurrence: US)
  Receive Date: 20231107
  Receipt Date: 20231201
  Transmission Date: 20240110
  Serious: Yes (Other)
  Sender: FDA-Public Use
  Company Number: US-ABBVIE-5483457

PATIENT
  Sex: Male

DRUGS (2)
  1. HUMIRA [Suspect]
     Active Substance: ADALIMUMAB
     Indication: Rheumatoid arthritis
     Dosage: CITRATE FREE. FORM STRENGTH: 40 MG
     Route: 058
     Dates: start: 20230623
  2. HUMIRA [Suspect]
     Active Substance: ADALIMUMAB
     Dosage: FORM STRENGTH: 40,?CITRATE FREE,?LAST ADMIN DATE: JUN 2023
     Route: 058
     Dates: start: 20230622

REACTIONS (2)
  - Blindness [Unknown]
  - Spinal stenosis [Recovering/Resolving]

NARRATIVE: CASE EVENT DATE: 20230101
